FAERS Safety Report 9361103 (Version 3)
Quarter: 2013Q3

REPORT INFORMATION
  Report Type: Report from Study
  Country: JP (occurrence: JP)
  Receive Date: 20130621
  Receipt Date: 20130730
  Transmission Date: 20140515
  Serious: Yes (Other)
  Sender: FDA-Public Use
  Company Number: JP-GILEAD-2013-0077576

PATIENT
  Age: 34 Year
  Sex: Male

DRUGS (6)
  1. TENOFOVIR DISOPROXIL FUMARATE [Suspect]
     Indication: HIV INFECTION
     Dosage: UNK
     Route: 048
     Dates: start: 20040414, end: 20111209
  2. EMTRICITABINE/TENOFOVIR DISOPROXIL FUMARATE [Suspect]
     Indication: HIV INFECTION
     Dosage: 1 DF, QD
     Route: 048
     Dates: start: 20101002
  3. ISENTRESS [Concomitant]
     Dosage: UNK
     Dates: start: 20101202
  4. ACTOS [Concomitant]
     Dosage: UNK
     Dates: start: 20120401
  5. DIOVAN [Concomitant]
     Dosage: UNK
     Dates: start: 20120401
  6. KOGENATE [Concomitant]
     Dosage: UNK
     Dates: start: 20120401

REACTIONS (1)
  - Renal tubular disorder [Recovered/Resolved]
